FAERS Safety Report 4523969-3 (Version None)
Quarter: 2004Q4

REPORT INFORMATION
  Report Type: 
  Country: None (occurrence: None)
  Receive Date: 20041209
  Receipt Date: 20041130
  Transmission Date: 20050328
  Serious: Yes (Death, Other)
  Sender: FDA-Public Use
  Company Number: 2004-10-0465

PATIENT
  Age: 59 Year
  Sex: Male
  Weight: 93.8946 kg

DRUGS (2)
  1. TEMODAR [Suspect]
     Indication: GLIOBLASTOMA
     Dosage: ORAL
     Route: 048
     Dates: start: 20040801, end: 20041001
  2. RADIATION THERAPY [Suspect]
     Indication: GLIOBLASTOMA
     Dosage: X-RAY THERAPY
     Dates: end: 20040901

REACTIONS (5)
  - ABDOMINAL PAIN [None]
  - FLANK PAIN [None]
  - MALIGNANT PLEURAL EFFUSION [None]
  - MESOTHELIOMA [None]
  - PNEUMONIA [None]
